FAERS Safety Report 9608481 (Version 1)
Quarter: 2013Q4

REPORT INFORMATION
  Report Type: Spontaneous
  Country: US (occurrence: US)
  Receive Date: 20131009
  Receipt Date: 20131009
  Transmission Date: 20140711
  Serious: No
  Sender: FDA-Public Use
  Company Number: US-BAYER-2013-121793

PATIENT
  Age: 42 Year
  Sex: Male

DRUGS (2)
  1. LEVITRA [Suspect]
     Indication: ERECTILE DYSFUNCTION
     Dosage: 20 MG, 3 DAYS A WEEK
     Route: 048
     Dates: start: 201308, end: 20131006
  2. MUSE [Concomitant]

REACTIONS (1)
  - Drug ineffective [None]
